FAERS Safety Report 6570267-2 (Version None)
Quarter: 2010Q1

REPORT INFORMATION
  Report Type: 
  Country: None (occurrence: None)
  Receive Date: 20100204
  Receipt Date: 20100126
  Transmission Date: 20100710
  Serious: Yes (Life-Threatening)
  Sender: FDA-Public Use
  Company Number: IT-PFIZER INC-2010011673

PATIENT
  Age: 65 Year
  Sex: Male

DRUGS (2)
  1. ARACYTIN [Suspect]
     Indication: ACUTE MYELOID LEUKAEMIA
     Dosage: 16 G, TOTAL
     Route: 042
     Dates: start: 20090630, end: 20090708
  2. ZAVEDOS [Suspect]
     Indication: ACUTE MYELOID LEUKAEMIA
     Dosage: 64 MG TOTAL
     Route: 042
     Dates: start: 20090702, end: 20090709

REACTIONS (3)
  - ENTEROBACTER SEPSIS [None]
  - HYPERPYREXIA [None]
  - PNEUMONIA [None]
